FAERS Safety Report 13530581 (Version 1)
Quarter: 2017Q2

REPORT INFORMATION
  Report Type: Spontaneous
  Country: US (occurrence: US)
  Receive Date: 20170509
  Receipt Date: 20170509
  Transmission Date: 20170830
  Serious: Yes (Other)
  Sender: FDA-Public Use
  Company Number: None

PATIENT
  Sex: Female

DRUGS (1)
  1. METHYLPREDNISOLONE. [Suspect]
     Active Substance: METHYLPREDNISOLONE
     Indication: HYPERSENSITIVITY
     Dosage: ?          QUANTITY:1 TABLET;OTHER FREQUENCY:TITRATION;?
     Route: 048

REACTIONS (3)
  - Hypersensitivity [None]
  - Throat irritation [None]
  - Tongue discomfort [None]

NARRATIVE: CASE EVENT DATE: 20170508
